FAERS Safety Report 7101986-7 (Version None)
Quarter: 2010Q4

REPORT INFORMATION
  Report Type: 
  Country: None (occurrence: None)
  Receive Date: 20101105
  Receipt Date: 20101021
  Transmission Date: 20110411
  Serious: Yes (Hospitalization)
  Sender: FDA-Public Use
  Company Number: UTC-001754

PATIENT
  Age: 56 Year
  Sex: Female
  Weight: 59.1 kg

DRUGS (2)
  1. TYVASO [Suspect]
     Dosage: 168 MCG (42 MCG,4 IN 1 D),INHALATION
     Route: 055
     Dates: start: 20091013
  2. TRACLEER [Suspect]
     Dosage: 125 MG

REACTIONS (2)
  - ASTHMA [None]
  - PNEUMONIA [None]
